FAERS Safety Report 15296884 (Version 2)
Quarter: 2018Q3

REPORT INFORMATION
  Report Type: Spontaneous
  Country: US (occurrence: US)
  Receive Date: 20180820
  Receipt Date: 20180912
  Transmission Date: 20181010
  Serious: Yes (Other)
  Sender: FDA-Public Use
  Company Number: US-SA-2018SA224020

PATIENT
  Sex: Female

DRUGS (23)
  1. HYDROCODONE [Concomitant]
     Active Substance: HYDROCODONE
  2. LEVOTHYROXIN [Concomitant]
     Active Substance: LEVOTHYROXINE
     Dosage: 75 UG
  3. PANTOPRAZOLE [Concomitant]
     Active Substance: PANTOPRAZOLE
     Dosage: UNK MG
  4. PHENAZOPYRIDIN HCL [Concomitant]
     Dosage: UNK MG
  5. PROAIR HFA [Concomitant]
     Active Substance: ALBUTEROL SULFATE
  6. AMOXICILLIN TRIHYDRATE [Concomitant]
     Active Substance: AMOXICILLIN
  7. VENTOLIN HFA [Concomitant]
     Active Substance: ALBUTEROL SULFATE
  8. BACTRIM [Concomitant]
     Active Substance: SULFAMETHOXAZOLE\TRIMETHOPRIM
     Dosage: 80 MG
  9. SPIRIVA [Concomitant]
     Active Substance: TIOTROPIUM BROMIDE MONOHYDRATE
  10. PRALUENT [Suspect]
     Active Substance: ALIROCUMAB
     Indication: PERIPHERAL VASCULAR DISORDER
     Dosage: 75 MG, QOW
     Route: 058
  11. METOCLOPRAMID [METOCLOPRAMIDE HYDROCHLORIDE] [Concomitant]
  12. FLUTICASONE. [Concomitant]
     Active Substance: FLUTICASONE
  13. NITROFURANTIN [Concomitant]
     Active Substance: NITROFURANTOIN
     Dosage: UNK MG
  14. ALPRAZOLAM. [Concomitant]
     Active Substance: ALPRAZOLAM
     Dosage: 0.5 MG
  15. ATENOLOL. [Concomitant]
     Active Substance: ATENOLOL
  16. CHLOREX?A [CHLORPHENAMINE MALEATE;PHENYLEPHRINE HYDROCHLORIDE;PHENYLTO [Concomitant]
  17. CLOPIDOGREL [Concomitant]
     Active Substance: CLOPIDOGREL BISULFATE
  18. SUCRALFATE. [Concomitant]
     Active Substance: SUCRALFATE
     Dosage: UNK G
  19. TRAMADOL. [Concomitant]
     Active Substance: TRAMADOL
     Dosage: UNK MG
  20. ALIROCUMAB PREFILLED PEN [Suspect]
     Active Substance: ALIROCUMAB
     Indication: PERIPHERAL VASCULAR DISORDER
     Dosage: 75 MG, QOW
     Route: 058
  21. LEVAQUIN [Concomitant]
     Active Substance: LEVOFLOXACIN
  22. RANITIDINE. [Concomitant]
     Active Substance: RANITIDINE
     Dosage: UNK MG
  23. AMLODIPINE BESYLATE AND BENAZEPRIL HYDROCHLORIDE [Concomitant]
     Active Substance: AMLODIPINE BESYLATE\BENAZEPRIL HYDROCHLORIDE

REACTIONS (3)
  - Hip fracture [Unknown]
  - Injection site mass [Not Recovered/Not Resolved]
  - Fall [Unknown]
